FAERS Safety Report 9182497 (Version 2)
Quarter: 2013Q1

REPORT INFORMATION
  Report Type: Spontaneous
  Country: GB (occurrence: GB)
  Receive Date: 20130322
  Receipt Date: 20130322
  Transmission Date: 20140127
  Serious: Yes (Hospitalization)
  Sender: FDA-Public Use
  Company Number: GB-PFIZER INC-2006094535

PATIENT
  Age: 50 Year
  Sex: Male

DRUGS (3)
  1. ANADIN EXTRA [Suspect]
     Indication: ARTHRALGIA
     Dosage: 400 MG, 2X/DAY
     Route: 048
     Dates: start: 20060401, end: 20060501
  2. ANADIN EXTRA [Suspect]
     Indication: ARTHRALGIA
  3. FLUOXETINE HCL [Suspect]
     Indication: DEPRESSION
     Dosage: 20 MG, 1X/DAY
     Route: 048
     Dates: start: 20060530, end: 20060620

REACTIONS (5)
  - Gastritis erosive [Recovered/Resolved]
  - Duodenal ulcer [Recovered/Resolved]
  - Melaena [Recovered/Resolved]
  - Haematemesis [Recovered/Resolved]
  - Abdominal pain upper [Recovered/Resolved]
